FAERS Safety Report 12802575 (Version 1)
Quarter: 2016Q3

REPORT INFORMATION
  Report Type: Spontaneous
  Country: US (occurrence: US)
  Receive Date: 20160930
  Receipt Date: 20160930
  Transmission Date: 20161109
  Serious: Yes (Hospitalization, Other)
  Sender: FDA-Public Use
  Company Number: None

PATIENT
  Age: 6 Year
  Sex: Male
  Weight: 21.6 kg

DRUGS (2)
  1. BABY TEETHING (HYLAND HOMEOPATHIC) [Suspect]
     Active Substance: HOMEOPATHICS
     Indication: TEETHING
     Dosage: ?          QUANTITY:40 TABLET(S);?
     Route: 048
  2. CHILDREN^S MULTIVITAMIN [Concomitant]

REACTIONS (2)
  - Seizure [None]
  - Febrile convulsion [None]

NARRATIVE: CASE EVENT DATE: 20120309
